FAERS Safety Report 16513730 (Version 1)
Quarter: 2019Q3

REPORT INFORMATION
  Report Type: Spontaneous
  Country: US (occurrence: US)
  Receive Date: 20190702
  Receipt Date: 20190702
  Transmission Date: 20191004
  Serious: No
  Sender: FDA-Public Use
  Company Number: US-IGSA-SR10008600

PATIENT
  Age: 66 Year
  Sex: Female
  Weight: 109 kg

DRUGS (4)
  1. GAMUNEX-C [Suspect]
     Active Substance: HUMAN IMMUNOGLOBULIN G
     Indication: CHRONIC INFLAMMATORY DEMYELINATING POLYRADICULONEUROPATHY
     Dosage: 55 G, Q.2WK.
     Route: 042
     Dates: start: 20190612, end: 20190612
  2. GAMUNEX-C [Suspect]
     Active Substance: HUMAN IMMUNOGLOBULIN G
     Dosage: UNK
  3. OMNICEF                            /00497602/ [Suspect]
     Active Substance: CEFOTAXIME SODIUM
     Indication: PHARYNGITIS STREPTOCOCCAL
     Dosage: 7 MG/KG, BID
     Route: 048
     Dates: start: 20190610
  4. GAMUNEX-C [Suspect]
     Active Substance: HUMAN IMMUNOGLOBULIN G
     Dosage: UNK

REACTIONS (2)
  - Urticaria [Recovered/Resolved]
  - Rash [Recovered/Resolved]

NARRATIVE: CASE EVENT DATE: 20190612
